FAERS Safety Report 7648197-4 (Version None)
Quarter: 2011Q3

REPORT INFORMATION
  Report Type: 
  Country: None (occurrence: None)
  Receive Date: 20110801
  Receipt Date: 20110722
  Transmission Date: 20111222
  Serious: Yes (Hospitalization, Other)
  Sender: FDA-Public Use
  Company Number: US-ASTRAZENECA-2011SE17213

PATIENT
  Age: 52 Year
  Sex: Female
  Weight: 78.5 kg

DRUGS (5)
  1. NEXIUM [Suspect]
     Route: 048
     Dates: start: 20101213
  2. NORVASC [Concomitant]
  3. ASPIRIN [Concomitant]
  4. HYDROCHLOROTHIAZIDE [Concomitant]
  5. PRILOSEC [Suspect]
     Route: 048
     Dates: start: 20100217

REACTIONS (13)
  - HYPOKALAEMIA [None]
  - GASTROOESOPHAGEAL REFLUX DISEASE [None]
  - MELAENA [None]
  - MALAISE [None]
  - ABDOMINAL PAIN UPPER [None]
  - INSOMNIA [None]
  - DRUG INEFFECTIVE [None]
  - GASTRIC ULCER HAEMORRHAGE [None]
  - ASTHENIA [None]
  - NAUSEA [None]
  - HAEMATEMESIS [None]
  - VOMITING [None]
  - ANXIETY [None]
